FAERS Safety Report 16061850 (Version 1)
Quarter: 2019Q2

REPORT INFORMATION
  Report Type: Spontaneous
  Country: US (occurrence: US)
  Receive Date: 20190312
  Receipt Date: 20190312
  Transmission Date: 20190711
  Serious: No
  Sender: FDA-Public Use
  Company Number: None

PATIENT
  Age: 37 Year
  Sex: Male
  Weight: 87.75 kg

DRUGS (22)
  1. PROZAC [Concomitant]
     Active Substance: FLUOXETINE HYDROCHLORIDE
  2. SENOKOT [Concomitant]
     Active Substance: SENNOSIDES
  3. CENTRUM SILVER [Concomitant]
     Active Substance: MINERALS\VITAMINS
  4. AZELASTINE. [Concomitant]
     Active Substance: AZELASTINE HYDROCHLORIDE
  5. METHADONE [Concomitant]
     Active Substance: METHADONE HYDROCHLORIDE
  6. LIDODERM [Concomitant]
     Active Substance: LIDOCAINE
  7. METAXALONE. [Concomitant]
     Active Substance: METAXALONE
  8. VITAMIN B12 [Concomitant]
     Active Substance: CYANOCOBALAMIN
  9. PROBIOTIC [Concomitant]
     Active Substance: PROBIOTICS NOS
  10. LUBIPROSTONE [Concomitant]
     Active Substance: LUBIPROSTONE
  11. CALCIUM [Concomitant]
     Active Substance: CALCIUM
  12. LOVAZA [Concomitant]
     Active Substance: OMEGA-3-ACID ETHYL ESTERS
  13. AMBIEN [Concomitant]
     Active Substance: ZOLPIDEM TARTRATE
  14. TESTOSTERONE. [Suspect]
     Active Substance: TESTOSTERONE
     Indication: HYPOGONADISM MALE
     Route: 062
  15. KLONOPIN [Concomitant]
     Active Substance: CLONAZEPAM
  16. XANAX [Concomitant]
     Active Substance: ALPRAZOLAM
  17. DILAUDID [Concomitant]
     Active Substance: HYDROMORPHONE HYDROCHLORIDE
  18. PROMETHAZINE [Concomitant]
     Active Substance: PROMETHAZINE\PROMETHAZINE HYDROCHLORIDE
  19. MIRALAX [Concomitant]
     Active Substance: POLYETHYLENE GLYCOL 3350
  20. AMINO ACID [Concomitant]
     Active Substance: AMINO ACIDS
  21. ALBUTEROL NEBS [Concomitant]
  22. LYRICA [Concomitant]
     Active Substance: PREGABALIN

REACTIONS (3)
  - Application site rash [None]
  - Rash pruritic [None]
  - Product substitution issue [None]

NARRATIVE: CASE EVENT DATE: 20160101
